FAERS Safety Report 25533029 (Version 1)
Quarter: 2025Q3

REPORT INFORMATION
  Report Type: Spontaneous
  Country: GB (occurrence: GB)
  Receive Date: 20250709
  Receipt Date: 20250709
  Transmission Date: 20251021
  Serious: Yes (Disabling)
  Sender: BOEHRINGER INGELHEIM
  Company Number: GB-MHRA-TPP21978534C10395610YC1751881079361

PATIENT
  Age: 73 Year
  Sex: Female
  Weight: 69 kg

DRUGS (12)
  1. EMPAGLIFLOZIN [Suspect]
     Active Substance: EMPAGLIFLOZIN
     Indication: Ill-defined disorder
     Dates: start: 20250307, end: 20250707
  2. ADCAL [Concomitant]
     Indication: Ill-defined disorder
     Dosage: MORNING AND EVENING
     Dates: start: 20250307
  3. AMLODIPINE [Concomitant]
     Active Substance: AMLODIPINE BESYLATE
     Indication: Ill-defined disorder
     Dates: start: 20250307
  4. ATORVASTATIN [Concomitant]
     Active Substance: ATORVASTATIN
     Indication: Ill-defined disorder
     Dates: start: 20250307
  5. BRICANYL [Concomitant]
     Active Substance: TERBUTALINE SULFATE
     Indication: Ill-defined disorder
     Dosage: 1 PUFF
     Dates: start: 20250307
  6. COCODAMOL [Concomitant]
     Active Substance: ACETAMINOPHEN\CODEINE PHOSPHATE
     Indication: Ill-defined disorder
  7. LANTUS [Concomitant]
     Active Substance: INSULIN GLARGINE
     Indication: Ill-defined disorder
     Dosage: AT NIGHT
     Dates: start: 20250307
  8. LINAGLIPTIN [Concomitant]
     Active Substance: LINAGLIPTIN
     Indication: Ill-defined disorder
     Dates: start: 20250307
  9. METFORMIN [Concomitant]
     Active Substance: METFORMIN HYDROCHLORIDE
     Indication: Ill-defined disorder
     Dates: start: 20250307
  10. PULMICORT TURBUHALER [Concomitant]
     Active Substance: BUDESONIDE
     Indication: Ill-defined disorder
     Dosage: 1 PUFF
     Dates: start: 20250307
  11. RAMIPRIL [Concomitant]
     Active Substance: RAMIPRIL
     Indication: Ill-defined disorder
     Dates: start: 20250307
  12. METFORMIN HYDROCHLORIDE [Concomitant]
     Active Substance: METFORMIN HYDROCHLORIDE
     Indication: Ill-defined disorder
     Dates: start: 20250307, end: 20250707

REACTIONS (2)
  - Dysuria [Recovered/Resolved]
  - Genital blister [Recovered/Resolved]
